FAERS Safety Report 22984733 (Version 3)
Quarter: 2023Q4

REPORT INFORMATION
  Report Type: Spontaneous
  Country: IT (occurrence: IT)
  Receive Date: 20230926
  Receipt Date: 20231009
  Transmission Date: 20240110
  Serious: Yes (Other)
  Sender: FDA-Public Use
  Company Number: None

PATIENT
  Age: 71 Year
  Sex: Male
  Weight: 60 kg

DRUGS (8)
  1. CABOMETYX [Suspect]
     Active Substance: CABOZANTINIB S-MALATE
     Indication: Metastases to liver
     Dosage: 1ST CYCLE/ 1ST DAY WITH CABOMETYX* 30CPR 40MG FL - DOSAGE SCHEDULE: 3 TABLETS TAKEN TOGETHER ORALLY
     Route: 048
     Dates: start: 20230621
  2. CABOMETYX [Suspect]
     Active Substance: CABOZANTINIB S-MALATE
     Indication: Renal cancer recurrent
  3. OPDIVO [Suspect]
     Active Substance: NIVOLUMAB
     Indication: Metastases to liver
     Dosage: 1ST CYCLE/ 1ST DAY WITH OPDIVO* 1FL 24ML 10MG /ML (EACH FL CONTAINS 240MG ); DOSE ADMINISTERED: 240
     Route: 042
     Dates: start: 20230621
  4. OPDIVO [Suspect]
     Active Substance: NIVOLUMAB
     Indication: Renal cancer recurrent
  5. VARCODES [Concomitant]
     Indication: Steroid therapy
     Dosage: VARCODES*30CPR EFF 2MG - DOSING SCHEDULE 1 TABLET PER DAY 2 DAYS AFTER TREATMENT IN DHS
     Route: 048
     Dates: start: 2023
  6. ENTECAVIR [Concomitant]
     Active Substance: ENTECAVIR
     Indication: Epstein-Barr virus infection
     Dosage: ENTECAVIR (PA) 30CPR RIV 0.5MG - DOSING SCHEDULE 1 TABLET PER DAY
     Route: 048
     Dates: start: 20230613
  7. PANTOPRAZOLE SODIUM [Concomitant]
     Active Substance: PANTOPRAZOLE SODIUM
     Indication: Gastrooesophageal reflux disease
     Dosage: PANTORC*28CPR GASTR 20MG - DOSING SCHEDULE 1 TABLET PER DAY
     Route: 048
     Dates: start: 2023
  8. METFORMIN HYDROCHLORIDE [Concomitant]
     Active Substance: METFORMIN HYDROCHLORIDE
     Indication: Insulin resistance
     Dosage: METFORAL*50CPR RIV 500MG - DOSING SCHEDULE 1 TABLET PER DAY
     Route: 048
     Dates: start: 2023

REACTIONS (2)
  - Hepatotoxicity [Recovering/Resolving]
  - Hypertransaminasaemia [Recovering/Resolving]

NARRATIVE: CASE EVENT DATE: 20230704
